FAERS Safety Report 6047244-3 (Version None)
Quarter: 2009Q1

REPORT INFORMATION
  Report Type: 
  Country: None (occurrence: None)
  Receive Date: 20090122
  Receipt Date: 20090115
  Transmission Date: 20090719
  Serious: Yes (Death)
  Sender: FDA-Public Use
  Company Number: PL-NOVOPROD-282159

PATIENT
  Age: 73 Year
  Sex: Male

DRUGS (4)
  1. NOVOMIX 50 PENFILL [Suspect]
     Indication: DIABETES MELLITUS
     Dosage: UNK, QD
     Route: 058
     Dates: start: 20080922
  2. NOVOLOG MIX 70/30 [Concomitant]
  3. MIXTARD 30 HM PENFILL [Concomitant]
     Dates: end: 20080922
  4. MIXTARD HM 50 [Concomitant]
     Dates: end: 20080922

REACTIONS (4)
  - BLOOD GLUCOSE INCREASED [None]
  - DEATH [None]
  - PRODUCT QUALITY ISSUE [None]
  - SYNCOPE [None]
